FAERS Safety Report 10575535 (Version 2)
Quarter: 2014Q4

REPORT INFORMATION
  Report Type: Spontaneous
  Country: CH (occurrence: CH)
  Receive Date: 20141111
  Receipt Date: 20141209
  Transmission Date: 20150529
  Serious: Yes (Other)
  Sender: FDA-Public Use
  Company Number: CH-009507513-1411CHE002033

PATIENT
  Age: 20 Year
  Sex: Female

DRUGS (1)
  1. IMPLANON [Suspect]
     Active Substance: ETONOGESTREL
     Indication: CONTRACEPTION
     Dosage: UNK
     Route: 058
     Dates: start: 201402, end: 20141103

REACTIONS (3)
  - Device breakage [Recovered/Resolved]
  - Depression [Recovering/Resolving]
  - Device kink [Recovered/Resolved]

NARRATIVE: CASE EVENT DATE: 201406
